FAERS Safety Report 14554587 (Version 1)
Quarter: 2018Q1

REPORT INFORMATION
  Report Type: Spontaneous
  Country: US (occurrence: US)
  Receive Date: 20180218
  Receipt Date: 20180218
  Transmission Date: 20180509
  Serious: Yes (Other)
  Sender: FDA-Public Use
  Company Number: None

PATIENT
  Age: 82 Year
  Sex: Male
  Weight: 72 kg

DRUGS (13)
  1. ISOSORBIDE MN ER [Concomitant]
     Active Substance: ISOSORBIDE
  2. ESOMEPRAZOLE MAG [Concomitant]
     Active Substance: ESOMEPRAZOLE MAGNESIUM
  3. TYLENOL EXTRA STRENGTH CAPLET [Suspect]
     Active Substance: ACETAMINOPHEN
     Indication: PYREXIA
     Dosage: ?          QUANTITY:2 TABLET(S);?
     Route: 048
     Dates: start: 20180218, end: 20180218
  4. METOPROLO ER SUCCINATE 50 MG [Concomitant]
     Active Substance: METOPROLOL SUCCINATE
  5. LATANOPROST. [Concomitant]
     Active Substance: LATANOPROST
  6. ASPIRIN 81 MG [Concomitant]
     Active Substance: ASPIRIN
  7. BEPREVE [Concomitant]
     Active Substance: BEPOTASTINE BESILATE
  8. DEL-IMMUUNE V SUPPLEMENT [Concomitant]
  9. DORZOLAMIDE HCI/TIMOLOL MALEATE [Concomitant]
     Active Substance: DORZOLAMIDE HYDROCHLORIDE\TIMOLOL MALEATE
  10. FLONASE [Concomitant]
     Active Substance: FLUTICASONE PROPIONATE
  11. SPIRONOLACTONE. [Concomitant]
     Active Substance: SPIRONOLACTONE
  12. ROSUVASTATIN. [Concomitant]
     Active Substance: ROSUVASTATIN
  13. RANEXA [Concomitant]
     Active Substance: RANOLAZINE

REACTIONS (1)
  - Urticaria [None]

NARRATIVE: CASE EVENT DATE: 20180218
